FAERS Safety Report 14805015 (Version 3)
Quarter: 2018Q2

REPORT INFORMATION
  Report Type: Spontaneous
  Country: NL (occurrence: NL)
  Receive Date: 20180425
  Receipt Date: 20180514
  Transmission Date: 20180711
  Serious: Yes (Other)
  Sender: FDA-Public Use
  Company Number: NL-AUROBINDO-AUR-APL-2018-020990

PATIENT
  Age: 5 Year
  Sex: Male
  Weight: 18 kg

DRUGS (21)
  1. TOPIRAMATE. [Suspect]
     Active Substance: TOPIRAMATE
     Indication: GENERALISED TONIC-CLONIC SEIZURE
  2. ZONISAMIDE. [Suspect]
     Active Substance: ZONISAMIDE
     Indication: GENERALISED TONIC-CLONIC SEIZURE
     Dosage: ()
  3. PHENYTOIN. [Concomitant]
     Active Substance: PHENYTOIN
     Indication: STATUS EPILEPTICUS
     Dosage: UNK
     Route: 042
  4. CLOBAZAM [Concomitant]
     Active Substance: CLOBAZAM
     Dosage: UNKNOWN DOSE ()
  5. VALPROIC ACID. [Concomitant]
     Active Substance: VALPROIC ACID
     Indication: GENERALISED TONIC-CLONIC SEIZURE
     Dosage: UNKNOWN DOSE ()
  6. VALPROIC ACID. [Concomitant]
     Active Substance: VALPROIC ACID
     Dosage: UNKNOWN DOSE ()
  7. LEVETIRACETAM. [Suspect]
     Active Substance: LEVETIRACETAM
     Indication: EPILEPSY
  8. TOPIRAMATE. [Suspect]
     Active Substance: TOPIRAMATE
     Indication: EPILEPSY
  9. ZONISAMIDE. [Suspect]
     Active Substance: ZONISAMIDE
     Dosage: UNKNOWN DOSE ()
  10. CLOBAZAM [Concomitant]
     Active Substance: CLOBAZAM
     Indication: GENERALISED TONIC-CLONIC SEIZURE
     Dosage: UNKNOWN DOSE ()
  11. LEVETIRACETAM. [Suspect]
     Active Substance: LEVETIRACETAM
     Indication: STATUS EPILEPTICUS
     Dosage: UNK, MAINTENANCE THERAPY
     Route: 065
  12. ZONISAMIDE. [Suspect]
     Active Substance: ZONISAMIDE
     Indication: EPILEPSY
     Dosage: ()
  13. ZONISAMIDE. [Suspect]
     Active Substance: ZONISAMIDE
     Dosage: UNKNOWN DOSE ()
  14. PHENYTOIN. [Concomitant]
     Active Substance: PHENYTOIN
     Dosage: ()
     Route: 042
  15. LAMOTRIGINE. [Concomitant]
     Active Substance: LAMOTRIGINE
     Indication: GENERALISED TONIC-CLONIC SEIZURE
     Dosage: UNKNOWN DOSE ()
  16. LAMOTRIGINE. [Concomitant]
     Active Substance: LAMOTRIGINE
     Dosage: UNKNOWN DOSE ()
  17. LEVETIRACETAM. [Suspect]
     Active Substance: LEVETIRACETAM
     Indication: GENERALISED TONIC-CLONIC SEIZURE
     Dosage: MAINTENANCE THERAPY
     Route: 065
     Dates: start: 2015, end: 201505
  18. ZONISAMIDE. [Suspect]
     Active Substance: ZONISAMIDE
     Indication: STATUS EPILEPTICUS
     Dosage: UNK, MAINTENANCE THERAPY
     Route: 065
  19. PHENYTOIN. [Concomitant]
     Active Substance: PHENYTOIN
     Dosage: ADMINISTRATION OF ORAL PHENYTOIN AT HOME
     Route: 048
  20. PHENYTOIN. [Concomitant]
     Active Substance: PHENYTOIN
     Dosage: INTRAVENOUS ADMINISTRATION AT THE EMERGENCY DEPARTMENT
     Route: 042
  21. TOPIRAMATE. [Suspect]
     Active Substance: TOPIRAMATE
     Indication: STATUS EPILEPTICUS
     Dosage: UNK, MAINTENANCE THERAPY
     Route: 065

REACTIONS (9)
  - Apathy [Unknown]
  - Condition aggravated [Recovered/Resolved]
  - Ataxia [Recovered/Resolved]
  - Status epilepticus [Recovered/Resolved]
  - Abnormal behaviour [Unknown]
  - Dysarthria [Recovered/Resolved]
  - Drug ineffective [Unknown]
  - Encephalopathy [Recovered/Resolved]
  - Seizure [Unknown]
